FAERS Safety Report 11388364 (Version 1)
Quarter: 2015Q3

REPORT INFORMATION
  Report Type: Spontaneous
  Country: BE (occurrence: BE)
  Receive Date: 20150817
  Receipt Date: 20150817
  Transmission Date: 20151125
  Serious: Yes (Disabling)
  Sender: FDA-Public Use
  Company Number: BE-JNJFOC-20150722103

PATIENT
  Age: 72 Year
  Sex: Female

DRUGS (1)
  1. SIMPONI [Suspect]
     Active Substance: GOLIMUMAB
     Indication: RHEUMATOID ARTHRITIS
     Route: 058
     Dates: end: 20150715

REACTIONS (1)
  - Staphylococcal infection [Not Recovered/Not Resolved]

NARRATIVE: CASE EVENT DATE: 201506
